FAERS Safety Report 23439510 (Version 1)
Quarter: 2024Q1

REPORT INFORMATION
  Report Type: Spontaneous
  Country: JP (occurrence: None)
  Receive Date: 20240124
  Receipt Date: 20240124
  Transmission Date: 20240410
  Serious: Yes (Death)
  Sender: FDA-Public Use
  Company Number: 2024A015914

PATIENT
  Age: 74 Year
  Sex: Female

DRUGS (1)
  1. OSIMERTINIB [Suspect]
     Active Substance: OSIMERTINIB
     Indication: Lung adenocarcinoma stage IV
     Route: 048
     Dates: end: 202102

REACTIONS (3)
  - Malignant neoplasm progression [Fatal]
  - Drug resistance [Fatal]
  - Acquired gene mutation [Fatal]

NARRATIVE: CASE EVENT DATE: 20201201
